FAERS Safety Report 4360067-6 (Version None)
Quarter: 2004Q2

REPORT INFORMATION
  Report Type: 
  Country: None (occurrence: None)
  Receive Date: 20040514
  Receipt Date: 20040506
  Transmission Date: 20050107
  Serious: Yes (Other)
  Sender: FDA-Public Use
  Company Number: 2004-04-0007

PATIENT
  Age: 34 Year
  Sex: Female
  Weight: 53 kg

DRUGS (2)
  1. VIRAFERONPEG [Suspect]
     Indication: HEPATITIS C
     Dosage: 0.5-0.3ML+QWK SUBCUTANEO
     Route: 058
     Dates: start: 20040109, end: 20040506
  2. REBETOL [Suspect]
     Indication: HEPATITIS C
     Dosage: 800 MG QD ORAL
     Route: 048
     Dates: start: 20040109, end: 20040506

REACTIONS (4)
  - CHILLS [None]
  - HYPERTHYROIDISM [None]
  - NEUTROPENIA [None]
  - WEIGHT DECREASED [None]
